FAERS Safety Report 8369975-2 (Version None)
Quarter: 2012Q2

REPORT INFORMATION
  Report Type: 
  Country: None (occurrence: None)
  Receive Date: 20120518
  Receipt Date: 20120509
  Transmission Date: 20120825
  Serious: Yes (Other)
  Sender: FDA-Public Use
  Company Number: JP-VERTEX PHARMACEUTICALS INC.-AE-2012-003965

PATIENT
  Age: 67 Year
  Sex: Male

DRUGS (13)
  1. RIBAVIRIN [Concomitant]
     Indication: HEPATITIS C
     Route: 048
     Dates: start: 20120120, end: 20120202
  2. PREDNISOLONE [Concomitant]
  3. TELAVIC (TELAPREVIR) [Suspect]
     Route: 048
     Dates: start: 20120217, end: 20120223
  4. DIFLORASONE DIACETATE [Concomitant]
     Route: 061
  5. PEGINTERFERON ALFA-2B [Concomitant]
     Indication: HEPATITIS C
     Route: 051
     Dates: start: 20120120, end: 20120217
  6. ENALAPRIL MALEATE [Concomitant]
     Route: 048
  7. AMLODIPINE [Concomitant]
     Route: 048
  8. JANUVIA [Concomitant]
     Route: 048
  9. RIBAVIRIN [Concomitant]
     Route: 048
     Dates: start: 20120209, end: 20120217
  10. TELAVIC (TELAPREVIR) [Suspect]
     Indication: HEPATITIS C
     Route: 048
     Dates: start: 20120120, end: 20120216
  11. RIBAVIRIN [Concomitant]
     Route: 048
     Dates: start: 20120203, end: 20120208
  12. METFORMIN HCL [Concomitant]
     Route: 048
  13. PRAVASTATIN SODIUM [Concomitant]
     Route: 048

REACTIONS (3)
  - HAEMOGLOBIN DECREASED [None]
  - RENAL IMPAIRMENT [None]
  - ANAEMIA [None]
